FAERS Safety Report 8740553 (Version 2)
Quarter: 2013Q4

REPORT INFORMATION
  Report Type: Spontaneous
  Country: US (occurrence: US)
  Receive Date: 20120823
  Receipt Date: 20131101
  Transmission Date: 20140711
  Serious: No
  Sender: FDA-Public Use
  Company Number: US-009507513-1208USA007164

PATIENT
  Age: 68 Year
  Sex: Male

DRUGS (5)
  1. DULERA [Suspect]
     Indication: CHRONIC OBSTRUCTIVE PULMONARY DISEASE
     Dosage: 2 DF, BID
     Route: 048
     Dates: start: 201202
  2. SPIRIVA [Concomitant]
  3. VENTOLIN (ALBUTEROL SULFATE) [Concomitant]
  4. BENICAR [Concomitant]
  5. BYSTOLIC [Concomitant]

REACTIONS (2)
  - Drug ineffective [Unknown]
  - Product quality issue [Unknown]
